FAERS Safety Report 15321238 (Version 5)
Quarter: 2019Q3

REPORT INFORMATION
  Report Type: Report from Study
  Country: US (occurrence: US)
  Receive Date: 20180827
  Receipt Date: 20190809
  Transmission Date: 20191004
  Serious: No
  Sender: FDA-Public Use
  Company Number: US-SA-2018SA236890

PATIENT
  Age: 64 Year
  Sex: Female

DRUGS (1)
  1. SARILUMAB [Suspect]
     Active Substance: SARILUMAB
     Indication: RHEUMATOID ARTHRITIS
     Dosage: 200 MG, QOW
     Route: 058
     Dates: start: 201801

REACTIONS (8)
  - Pain [Unknown]
  - Nasal discharge discolouration [Unknown]
  - Productive cough [Unknown]
  - Oral herpes [Recovered/Resolved]
  - Pharyngitis streptococcal [Unknown]
  - Cheilitis [Unknown]
  - Infection [Unknown]
  - Rhinorrhoea [Unknown]
